FAERS Safety Report 25335885 (Version 1)
Quarter: 2025Q2

REPORT INFORMATION
  Report Type: Report from Study
  Country: CN (occurrence: CN)
  Receive Date: 20250520
  Receipt Date: 20250520
  Transmission Date: 20250716
  Serious: Yes (Other)
  Sender: ROCHE
  Company Number: CN-ROCHE-10000284047

PATIENT

DRUGS (12)
  1. TECENTRIQ [Suspect]
     Active Substance: ATEZOLIZUMAB
     Indication: Hepatocellular carcinoma
     Route: 065
  2. TISLELIZUMAB [Suspect]
     Active Substance: TISLELIZUMAB
     Indication: Hepatocellular carcinoma
     Route: 065
  3. SINTILIMAB [Suspect]
     Active Substance: SINTILIMAB
     Indication: Hepatocellular carcinoma
     Route: 065
  4. CAMRELIZUMAB [Suspect]
     Active Substance: CAMRELIZUMAB
     Indication: Hepatocellular carcinoma
     Route: 065
  5. TORIPALIMAB [Suspect]
     Active Substance: TORIPALIMAB
     Indication: Hepatocellular carcinoma
     Route: 065
  6. PEMBROLIZUMAB [Suspect]
     Active Substance: PEMBROLIZUMAB
     Indication: Hepatocellular carcinoma
     Route: 065
  7. NIVOLUMAB [Suspect]
     Active Substance: NIVOLUMAB
     Indication: Hepatocellular carcinoma
     Route: 065
  8. ENVAFOLIMAB [Suspect]
     Active Substance: ENVAFOLIMAB
     Indication: Hepatocellular carcinoma
     Route: 065
  9. LENVATINIB [Suspect]
     Active Substance: LENVATINIB
     Indication: Hepatocellular carcinoma
     Route: 065
  10. SORAFENIB [Suspect]
     Active Substance: SORAFENIB
     Indication: Hepatocellular carcinoma
     Route: 065
  11. DONAFENIB [Suspect]
     Active Substance: DONAFENIB
     Indication: Hepatocellular carcinoma
     Route: 065
  12. BEVACIZUMAB [Suspect]
     Active Substance: BEVACIZUMAB
     Indication: Hepatocellular carcinoma
     Route: 065

REACTIONS (30)
  - Anaemia [Unknown]
  - Abdominal pain [Unknown]
  - Thrombocytopenia [Unknown]
  - Alanine aminotransferase increased [Unknown]
  - Aspartate aminotransferase increased [Unknown]
  - Pyrexia [Unknown]
  - Fatigue [Unknown]
  - Nausea [Unknown]
  - Vomiting [Unknown]
  - Hypoalbuminaemia [Unknown]
  - Hyperbilirubinaemia [Unknown]
  - Diarrhoea [Unknown]
  - Constipation [Unknown]
  - Liver abscess [Unknown]
  - Pleural effusion [Unknown]
  - Ascites [Unknown]
  - Hepatic failure [Unknown]
  - Biliary tract disorder [Unknown]
  - Abdominal infection [Unknown]
  - Pneumonia [Unknown]
  - Deep vein thrombosis [Unknown]
  - Wound infection [Unknown]
  - Haemorrhage [Unknown]
  - Thyroid disorder [Unknown]
  - Stomatitis [Unknown]
  - Gastrointestinal haemorrhage [Unknown]
  - Rash [Unknown]
  - Palmar-plantar erythrodysaesthesia syndrome [Unknown]
  - Hypertension [Unknown]
  - Hepatic encephalopathy [Unknown]
